FAERS Safety Report 9863022 (Version 2)
Quarter: 2014Q1

REPORT INFORMATION
  Report Type: Spontaneous
  Country: US (occurrence: US)
  Receive Date: 20140203
  Receipt Date: 20140217
  Transmission Date: 20141002
  Serious: Yes (Death, Life-Threatening, Hospitalization, Other)
  Sender: FDA-Public Use
  Company Number: US-009507513-1401USA014690

PATIENT
  Sex: Female
  Weight: 63.49 kg

DRUGS (4)
  1. JANUVIA [Suspect]
     Indication: TYPE 2 DIABETES MELLITUS
     Dosage: 50 MG, QD
     Route: 048
     Dates: start: 20081206, end: 20091002
  2. JANUVIA [Suspect]
     Dosage: 25 MG, QD
     Route: 048
     Dates: start: 20090820, end: 20091020
  3. JANUVIA [Suspect]
     Dosage: 25 MG, QD
     Route: 048
     Dates: start: 20111003, end: 20120322
  4. NOVOLIN [Concomitant]

REACTIONS (16)
  - Pancreatic carcinoma [Unknown]
  - Death [Fatal]
  - Pancreatic carcinoma metastatic [Fatal]
  - Gastroenterostomy [Unknown]
  - Obstruction gastric [Unknown]
  - Gastrointestinal haemorrhage [Unknown]
  - Femur fracture [Unknown]
  - Failure to thrive [Unknown]
  - Leg amputation [Unknown]
  - Hypoacusis [Unknown]
  - Pancreatitis [Unknown]
  - Renal failure chronic [Not Recovered/Not Resolved]
  - Cardiac failure congestive [Unknown]
  - Peripheral vascular disorder [Unknown]
  - Dementia [Unknown]
  - Faecaloma [Unknown]
